FAERS Safety Report 15634848 (Version 1)
Quarter: 2018Q4

REPORT INFORMATION
  Report Type: Spontaneous
  Country: FR (occurrence: FR)
  Receive Date: 20181119
  Receipt Date: 20181119
  Transmission Date: 20190205
  Serious: Yes (Disabling)
  Sender: FDA-Public Use
  Company Number: FR-009507513-1811FRA004409

PATIENT
  Age: 33 Year
  Sex: Male

DRUGS (1)
  1. CELESTENE CHRONODOSE [Suspect]
     Active Substance: BETAMETHASONE
     Indication: INTERVERTEBRAL DISC DISORDER
     Dosage: 1 DOSAGE FORM
     Route: 030

REACTIONS (2)
  - Visual acuity reduced [Recovered/Resolved]
  - Myopia [Not Recovered/Not Resolved]
